FAERS Safety Report 11148592 (Version 3)
Quarter: 2015Q4

REPORT INFORMATION
  Report Type: Spontaneous
  Country: SE (occurrence: SE)
  Receive Date: 20150529
  Receipt Date: 20151012
  Transmission Date: 20160304
  Serious: Yes (Other)
  Sender: FDA-Public Use
  Company Number: SE-MYLANLABS-2015M1016670

PATIENT

DRUGS (1)
  1. NAPROXEN MYLAN 500 MG [Suspect]
     Active Substance: NAPROXEN
     Indication: BURSITIS
     Dosage: 500 MG, BID
     Route: 065
     Dates: start: 20150218, end: 20150224

REACTIONS (10)
  - Eye swelling [Not Recovered/Not Resolved]
  - Swelling [Recovered/Resolved]
  - Vomiting [Recovered/Resolved]
  - Visual impairment [Not Recovered/Not Resolved]
  - Pneumonia [Recovered/Resolved]
  - Paraesthesia [Recovered/Resolved]
  - Dry mouth [Recovered/Resolved]
  - Malaise [Unknown]
  - Eye pain [Recovered/Resolved]
  - Ocular hyperaemia [Recovered/Resolved]

NARRATIVE: CASE EVENT DATE: 20150224
